FAERS Safety Report 16047837 (Version 2)
Quarter: 2019Q1

REPORT INFORMATION
  Report Type: Spontaneous
  Country: CA (occurrence: CA)
  Receive Date: 20190307
  Receipt Date: 20190325
  Transmission Date: 20190418
  Serious: Yes (Other)
  Sender: FDA-Public Use
  Company Number: CA-PFIZER INC-2019096749

PATIENT
  Age: 29 Year
  Sex: Male

DRUGS (4)
  1. XELJANZ [Suspect]
     Active Substance: TOFACITINIB CITRATE
     Indication: COLITIS ULCERATIVE
     Dosage: 10 MG, 2X/DAY
     Route: 048
     Dates: start: 20190222, end: 20190225
  2. XELJANZ [Suspect]
     Active Substance: TOFACITINIB CITRATE
     Dosage: 10 MG, 2X/DAY
     Route: 048
     Dates: start: 20190227
  3. PREDNISONE. [Concomitant]
     Active Substance: PREDNISONE
     Dosage: 40 MG, DAILY
  4. XELJANZ [Suspect]
     Active Substance: TOFACITINIB CITRATE
     Dosage: 15 MG, 2X/DAY
     Route: 048
     Dates: start: 20190226, end: 20190226

REACTIONS (7)
  - Wrong technique in product usage process [Unknown]
  - Acne [Unknown]
  - Product dose omission [Unknown]
  - Colitis ulcerative [Recovered/Resolved]
  - Condition aggravated [Recovered/Resolved]
  - Cough [Unknown]
  - Throat irritation [Unknown]

NARRATIVE: CASE EVENT DATE: 20190224
